FAERS Safety Report 8760587 (Version 1)
Quarter: 2012Q4

REPORT INFORMATION
  Report Type: 
  Country: US (occurrence: None)
  Receive Date: 20120829
  Receipt Date: 20120829
  Transmission Date: 20130627
  Serious: Yes (Hospitalization)
  Sender: FDA-Public Use
  Company Number: None

PATIENT
  Sex: Male
  Weight: 81.6 kg

DRUGS (1)
  1. ALFA 2 INTERFERON 2B (INTRON-A) [Suspect]
     Dates: end: 20120723

REACTIONS (6)
  - Back pain [None]
  - Pain in extremity [None]
  - Nausea [None]
  - Dehydration [None]
  - Vomiting [None]
  - Diarrhoea [None]
